FAERS Safety Report 7358974-5 (Version None)
Quarter: 2011Q1

REPORT INFORMATION
  Report Type: 
  Country: None (occurrence: None)
  Receive Date: 20110317
  Receipt Date: 20100811
  Transmission Date: 20110831
  Serious: Yes (Hospitalization, Other)
  Sender: FDA-Public Use
  Company Number: US-BAYER-201024193NA

PATIENT
  Sex: Female
  Weight: 83.9 kg

DRUGS (2)
  1. MAXALT [Concomitant]
     Indication: MIGRAINE
  2. YAZ [Suspect]
     Indication: PREMENSTRUAL SYNDROME
     Dosage: UNK UNK, UNK
     Route: 048
     Dates: start: 20071201, end: 20080701

REACTIONS (4)
  - PULMONARY EMBOLISM [None]
  - DEEP VEIN THROMBOSIS [None]
  - EMOTIONAL DISTRESS [None]
  - RESPIRATORY FAILURE [None]
